FAERS Safety Report 5216136-1 (Version None)
Quarter: 2007Q1

REPORT INFORMATION
  Report Type: 
  Country: None (occurrence: None)
  Receive Date: 20070123
  Receipt Date: 20070111
  Transmission Date: 20070707
  Serious: Yes (Other)
  Sender: FDA-Public Use
  Company Number: PFIZER INC-2007004091

PATIENT
  Sex: Female
  Weight: 46.3 kg

DRUGS (2)
  1. CHANTIX [Suspect]
     Indication: EX-SMOKER
     Dates: start: 20070106, end: 20070111
  2. XANAX [Suspect]
     Indication: PANIC DISORDER

REACTIONS (1)
  - PANIC DISORDER [None]
